FAERS Safety Report 22356031 (Version 2)
Quarter: 2023Q2

REPORT INFORMATION
  Report Type: Spontaneous
  Country: IT (occurrence: IT)
  Receive Date: 20230523
  Receipt Date: 20230524
  Transmission Date: 20230722
  Serious: Yes (Death, Hospitalization, Other)
  Sender: FDA-Public Use
  Company Number: IT-002147023-NVSC2023IT117086

PATIENT
  Age: 73 Year
  Sex: Male

DRUGS (3)
  1. IMATINIB [Suspect]
     Active Substance: IMATINIB
     Indication: Chronic myeloid leukaemia
     Dosage: 400 MG
     Route: 065
     Dates: start: 201402
  2. IMATINIB [Suspect]
     Active Substance: IMATINIB
     Dosage: 300 MG
     Route: 065
  3. BOSUTINIB [Suspect]
     Active Substance: BOSUTINIB
     Indication: Chronic myeloid leukaemia
     Dosage: 300 MG
     Route: 065
     Dates: start: 20170610

REACTIONS (13)
  - Respiratory failure [Fatal]
  - Pneumonia [Unknown]
  - Circulatory collapse [Unknown]
  - Dyspnoea [Unknown]
  - Eyelid oedema [Unknown]
  - Pulmonary arterial pressure increased [Unknown]
  - Pyrexia [Unknown]
  - Fatigue [Unknown]
  - Anaemia [Unknown]
  - Weight decreased [Unknown]
  - Cough [Unknown]
  - Weight increased [Unknown]
  - Cytogenetic analysis abnormal [Unknown]

NARRATIVE: CASE EVENT DATE: 20170101
